FAERS Safety Report 6051351-9 (Version None)
Quarter: 2009Q1

REPORT INFORMATION
  Report Type: 
  Country: None (occurrence: None)
  Receive Date: 20090121
  Receipt Date: 20090113
  Transmission Date: 20090719
  Serious: Yes (Life-Threatening)
  Sender: FDA-Public Use
  Company Number: 112390

PATIENT
  Age: 79 Year
  Sex: Female

DRUGS (9)
  1. RANITIDINE HCL [Suspect]
     Dosage: 300 MG/UNK/ORAL
     Route: 048
  2. ASPIRIN [Suspect]
     Dosage: 75 MG
  3. AMLODIPINE [Concomitant]
  4. ATORVASTATIN [Concomitant]
  5. LANSOPRAZOLE [Concomitant]
  6. SERETIDE [Concomitant]
  7. TEMAZEPAM [Concomitant]
  8. VALSARTAN [Concomitant]
  9. VENTOLIN [Concomitant]

REACTIONS (2)
  - ASTHMA [None]
  - LOWER RESPIRATORY TRACT INFECTION [None]
